FAERS Safety Report 16290132 (Version 3)
Quarter: 2019Q3

REPORT INFORMATION
  Report Type: Spontaneous
  Country: US (occurrence: US)
  Receive Date: 20190509
  Receipt Date: 20190925
  Transmission Date: 20191004
  Serious: Yes (Other)
  Sender: FDA-Public Use
  Company Number: US-GLAXOSMITHKLINE-US2019GSK082610

PATIENT
  Sex: Female

DRUGS (4)
  1. PANTOPRAZOLE [Suspect]
     Active Substance: PANTOPRAZOLE
     Indication: GASTROOESOPHAGEAL REFLUX DISEASE
     Dosage: 40 MG, QD
     Route: 048
  2. PREVACID [Suspect]
     Active Substance: LANSOPRAZOLE
     Indication: GASTROOESOPHAGEAL REFLUX DISEASE
     Dosage: 15 MG, QD
     Route: 065
  3. PREVACID [Suspect]
     Active Substance: LANSOPRAZOLE
     Indication: GASTROOESOPHAGEAL REFLUX DISEASE
     Dosage: 30 MG, QD
     Route: 065
  4. ESOMEPRAZOLE. [Suspect]
     Active Substance: ESOMEPRAZOLE MAGNESIUM
     Indication: GASTROOESOPHAGEAL REFLUX DISEASE
     Dosage: 40 MG, QD
     Route: 048

REACTIONS (17)
  - Chronic kidney disease [Not Recovered/Not Resolved]
  - Haematuria [Unknown]
  - Nephrolithiasis [Unknown]
  - Dysuria [Unknown]
  - Acute kidney injury [Not Recovered/Not Resolved]
  - Urinary hesitation [Unknown]
  - Nocturia [Unknown]
  - Polyuria [Unknown]
  - Urinary incontinence [Unknown]
  - Urinary retention [Unknown]
  - Dialysis [Not Recovered/Not Resolved]
  - Micturition urgency [Unknown]
  - Oliguria [Unknown]
  - Chromaturia [Unknown]
  - Renal failure [Not Recovered/Not Resolved]
  - Pollakiuria [Unknown]
  - Urine flow decreased [Unknown]
